FAERS Safety Report 6236624-9 (Version None)
Quarter: 2009Q2

REPORT INFORMATION
  Report Type: 
  Country: None (occurrence: None)
  Receive Date: 20090619
  Receipt Date: 20080730
  Transmission Date: 20091009
  Serious: No
  Sender: FDA-Public Use
  Company Number: US-ASTRAZENECA-2008UW15759

PATIENT
  Age: 94 Year
  Sex: Female
  Weight: 68.5 kg

DRUGS (4)
  1. ATACAND HCT [Suspect]
     Indication: HYPERTENSION
     Dosage: 16 MG + 12.5 MG
     Route: 048
     Dates: start: 20080601
  2. METOPROLOL SUCCINATE [Concomitant]
  3. LEVOXYL [Concomitant]
  4. ASPIRIN [Concomitant]

REACTIONS (4)
  - DRUG INEFFECTIVE [None]
  - HYPERTENSION [None]
  - PRURITUS [None]
  - THROAT IRRITATION [None]
